FAERS Safety Report 4591508-7 (Version None)
Quarter: 2005Q1

REPORT INFORMATION
  Report Type: 
  Country: None (occurrence: None)
  Receive Date: 20050223
  Receipt Date: 20050223
  Transmission Date: 20050727
  Serious: Yes (Death)
  Sender: FDA-Public Use
  Company Number: None

PATIENT
  Age: 81 Year
  Sex: Female
  Weight: 81.6475 kg

DRUGS (3)
  1. SIMVASTATIN [Suspect]
     Indication: HYPERCHOLESTEROLAEMIA
     Dates: start: 20000101, end: 20041112
  2. DOXYLAMINE [Suspect]
     Indication: COUGH
     Dates: start: 20041109, end: 20041112
  3. DOXYLAMINE [Suspect]
     Indication: VIRAL INFECTION
     Dates: start: 20041109, end: 20041112

REACTIONS (4)
  - BLOOD CREATINE PHOSPHOKINASE INCREASED [None]
  - MUSCULAR WEAKNESS [None]
  - RENAL FAILURE ACUTE [None]
  - VIRAL INFECTION [None]
